FAERS Safety Report 4271390-8 (Version None)
Quarter: 2004Q1

REPORT INFORMATION
  Report Type: 
  Country: None (occurrence: None)
  Receive Date: 20040114
  Receipt Date: 20040114
  Transmission Date: 20041129
  Serious: Yes (Life-Threatening, Hospitalization)
  Sender: FDA-Public Use
  Company Number: None

PATIENT
  Age: 55 Year
  Sex: Male
  Weight: 99.5 kg

DRUGS (2)
  1. INTEGRILIN [Suspect]
     Indication: ACUTE CORONARY SYNDROME
     Dosage: 180 MCG/ 2 KG INTRAVENOUS
     Route: 042
     Dates: start: 20040111, end: 20040112
  2. LOVENOX [Suspect]
     Indication: ACUTE CORONARY SYNDROME
     Dosage: 56 MG ONCE INTRAVENOUS
     Route: 042
     Dates: start: 20040111, end: 20040111

REACTIONS (2)
  - CHEST PAIN [None]
  - VOMITING [None]
